FAERS Safety Report 23055926 (Version 2)
Quarter: 2023Q4

REPORT INFORMATION
  Report Type: Spontaneous
  Country: ES (occurrence: ES)
  Receive Date: 20231011
  Receipt Date: 20231030
  Transmission Date: 20240110
  Serious: Yes (Hospitalization, Other)
  Sender: FDA-Public Use
  Company Number: ES-GILEAD-2023-0646944

PATIENT
  Age: 67 Year
  Sex: Male

DRUGS (1)
  1. YESCARTA [Suspect]
     Active Substance: AXICABTAGENE CILOLEUCEL
     Indication: Diffuse large B-cell lymphoma
     Dosage: 0.4-2 X 10E8
     Route: 042
     Dates: start: 20230316, end: 20230316

REACTIONS (3)
  - Cardio-respiratory arrest [Unknown]
  - Dysphagia [Unknown]
  - Asthenia [Unknown]

NARRATIVE: CASE EVENT DATE: 20230913
